FAERS Safety Report 8309641 (Version 2)
Quarter: 2014Q2

REPORT INFORMATION
  Report Type: Spontaneous
  Country: US (occurrence: US)
  Receive Date: 20111223
  Receipt Date: 20140411
  Transmission Date: 20141212
  Serious: Yes (Other)
  Sender: FDA-Public Use
  Company Number: US-RANBAXY-2011US-51197

PATIENT
  Age: 38 Year
  Sex: Male

DRUGS (9)
  1. GABAPENTIN [Suspect]
     Indication: HEADACHE
     Dosage: 2400 MG, DAILY
     Route: 065
  2. GABAPENTIN [Suspect]
     Indication: ANXIETY
  3. GABAPENTIN [Suspect]
     Indication: HEADACHE
     Dosage: 4800 MG, DAILY
     Route: 065
  4. GABAPENTIN [Suspect]
     Indication: ANXIETY
  5. BUSPIRONE [Concomitant]
     Indication: DEPRESSION
     Dosage: 20 MG, TID
     Route: 065
  6. BUSPIRONE [Concomitant]
     Indication: ANXIETY
  7. BUPROPION [Concomitant]
     Indication: DEPRESSION
     Dosage: 200 MG, BID
     Route: 065
  8. BUPROPION [Concomitant]
     Indication: ANXIETY
  9. ATENOLOL [Concomitant]
     Indication: HYPERTENSION
     Dosage: 100 MG, DAILY
     Route: 065

REACTIONS (4)
  - Delirium [Recovering/Resolving]
  - Drug dependence [Recovering/Resolving]
  - Off label use [Unknown]
  - Intentional overdose [Recovering/Resolving]
